FAERS Safety Report 4286893-X (Version None)
Quarter: 2004Q1

REPORT INFORMATION
  Report Type: 
  Country: None (occurrence: None)
  Receive Date: 20040128
  Receipt Date: 20040112
  Transmission Date: 20041129
  Serious: Yes (Death)
  Sender: FDA-Public Use
  Company Number: 232904

PATIENT
  Age: 44 Year
  Sex: Male

DRUGS (3)
  1. NOVOSEVEN [Suspect]
     Indication: COAGULOPATHY
     Dosage: 90 UG/KG INTRAVENOUS; SEE IMAGE
     Route: 042
  2. RED BLOOD CELLS [Concomitant]
  3. PLASMA [Concomitant]

REACTIONS (8)
  - CONCOMITANT DISEASE PROGRESSION [None]
  - HAEMORRHAGE [None]
  - INJURY [None]
  - MULTI-ORGAN FAILURE [None]
  - PANCREATITIS [None]
  - RENAL FAILURE [None]
  - SEPSIS [None]
  - THERMAL BURN [None]
